FAERS Safety Report 21456231 (Version 1)
Quarter: 2022Q4

REPORT INFORMATION
  Report Type: Spontaneous
  Country: CN (occurrence: CN)
  Receive Date: 20221014
  Receipt Date: 20221014
  Transmission Date: 20230113
  Serious: Yes (Other)
  Sender: FDA-Public Use
  Company Number: CN-AUROBINDO-AUR-APL-2022-042137

PATIENT
  Age: 51 Year
  Sex: Female
  Weight: 57 kg

DRUGS (7)
  1. EVOMELA [Suspect]
     Active Substance: MELPHALAN HYDROCHLORIDE
     Indication: Non-Hodgkin^s lymphoma
     Dosage: 222 MILLIGRAM, ONCE A DAY
     Route: 041
     Dates: start: 20220831
  2. ETOPOSIDE [Suspect]
     Active Substance: ETOPOSIDE
     Indication: Non-Hodgkin^s lymphoma
     Dosage: 119 MILLIGRAM, TWO TIMES A DAY
     Route: 041
     Dates: start: 20220827
  3. CARMUSTINE [Suspect]
     Active Substance: CARMUSTINE
     Indication: Non-Hodgkin^s lymphoma
     Dosage: 476 MILLIGRAM, ONCE A DAY
     Route: 041
     Dates: start: 20220826
  4. CYTARABINE [Suspect]
     Active Substance: CYTARABINE
     Indication: Non-Hodgkin^s lymphoma
     Dosage: 159 MILLIGRAM, TWO TIMES A DAY
     Route: 041
     Dates: start: 20220827
  5. DEXTROSE [Suspect]
     Active Substance: DEXTROSE
     Indication: Non-Hodgkin^s lymphoma
     Dosage: 150 MILLIGRAM, ONCE A DAY
     Route: 042
  6. SODIUM CHLORIDE [Suspect]
     Active Substance: SODIUM CHLORIDE
     Indication: Non-Hodgkin^s lymphoma
     Dosage: 500 MILLIGRAM, TWO TIMES A DAY
     Route: 042
  7. SODIUM CHLORIDE [Suspect]
     Active Substance: SODIUM CHLORIDE
     Indication: Non-Hodgkin^s lymphoma
     Dosage: 494 MILLIGRAM
     Route: 042

REACTIONS (2)
  - Myelosuppression [Recovering/Resolving]
  - Off label use [Unknown]

NARRATIVE: CASE EVENT DATE: 20220831
